FAERS Safety Report 8073118-2 (Version None)
Quarter: 2012Q1

REPORT INFORMATION
  Report Type: 
  Country: None (occurrence: None)
  Receive Date: 20120126
  Receipt Date: 20120111
  Transmission Date: 20120608
  Serious: Yes (Other)
  Sender: FDA-Public Use
  Company Number: CA-JNJFOC-20120110818

PATIENT
  Sex: Female
  Weight: 61 kg

DRUGS (3)
  1. REMICADE [Suspect]
     Indication: COLITIS ULCERATIVE
     Dates: start: 20111020
  2. VITAMIN D [Concomitant]
  3. CALCIUM [Concomitant]

REACTIONS (5)
  - DRY SKIN [None]
  - INFUSION RELATED REACTION [None]
  - ARTHRALGIA [None]
  - ERYTHEMA [None]
  - ALOPECIA [None]
